FAERS Safety Report 7132415-5 (Version None)
Quarter: 2010Q4

REPORT INFORMATION
  Report Type: 
  Country: None (occurrence: None)
  Receive Date: 20101202
  Receipt Date: 20101118
  Transmission Date: 20110411
  Serious: Yes (Hospitalization)
  Sender: FDA-Public Use
  Company Number: DE-TEVA-255897GER

PATIENT
  Age: 72 Year
  Sex: Male

DRUGS (8)
  1. DIAZEPAM [Suspect]
     Route: 048
     Dates: start: 20100330, end: 20100401
  2. DIAZEPAM [Suspect]
     Route: 048
     Dates: start: 20100402
  3. DIAZEPAM [Suspect]
     Route: 048
     Dates: start: 20100408, end: 20100412
  4. BIPERIDEN HYDROCHLORIDE TAB [Suspect]
     Indication: ALCOHOL WITHDRAWAL SYNDROME
     Route: 042
     Dates: start: 20100412, end: 20100412
  5. HALOPERIDOL [Suspect]
     Route: 048
     Dates: start: 20100330
  6. HALOPERIDOL [Suspect]
     Route: 048
     Dates: start: 20100331, end: 20100401
  7. HALOPERIDOL [Suspect]
     Route: 048
     Dates: start: 20100402
  8. HALOPERIDOL [Suspect]
     Route: 048
     Dates: start: 20100408, end: 20100412

REACTIONS (1)
  - DEPRESSED LEVEL OF CONSCIOUSNESS [None]
